FAERS Safety Report 24232449 (Version 3)
Quarter: 2024Q3

REPORT INFORMATION
  Report Type: Spontaneous
  Country: JP (occurrence: JP)
  Receive Date: 20240821
  Receipt Date: 20240829
  Transmission Date: 20241017
  Serious: Yes (Hospitalization, Other)
  Sender: MERZ
  Company Number: JP-teijin-202403112_XEO_P_1

PATIENT
  Age: 48 Year
  Sex: Male

DRUGS (3)
  1. XEOMIN [Suspect]
     Active Substance: INCOBOTULINUMTOXINA
     Indication: Muscle spasticity
     Dosage: 400 025
     Route: 030
     Dates: start: 20230111, end: 20230111
  2. XEOMIN [Suspect]
     Active Substance: INCOBOTULINUMTOXINA
     Dosage: 400 025
     Route: 030
     Dates: start: 20240417, end: 20240417
  3. XEOMIN [Suspect]
     Active Substance: INCOBOTULINUMTOXINA
     Dosage: 400 025
     Route: 030
     Dates: start: 20240719, end: 20240719

REACTIONS (5)
  - Respiratory failure [Unknown]
  - Restrictive pulmonary disease [Unknown]
  - Atrial fibrillation [Unknown]
  - Injection site discomfort [Unknown]
  - Off label use [Unknown]

NARRATIVE: CASE EVENT DATE: 20230111
